FAERS Safety Report 6901665-2 (Version None)
Quarter: 2010Q3

REPORT INFORMATION
  Report Type: 
  Country: None (occurrence: None)
  Receive Date: 20100802
  Receipt Date: 20100802
  Transmission Date: 20110219
  Serious: Yes (Other)
  Sender: FDA-Public Use
  Company Number: None

PATIENT
  Age: 40 Year
  Sex: Female
  Weight: 68.0396 kg

DRUGS (1)
  1. YAZ [Suspect]
     Indication: PREMENSTRUAL SYNDROME
     Dosage: ONCE DAILY, 1 WEEK OF HELL
     Dates: start: 20100725, end: 20100802

REACTIONS (7)
  - ABDOMINAL DISTENSION [None]
  - BACK PAIN [None]
  - BREAST SWELLING [None]
  - CRYING [None]
  - DEPRESSION [None]
  - INSOMNIA [None]
  - WEIGHT INCREASED [None]
